FAERS Safety Report 4334290-0 (Version None)
Quarter: 2004Q1

REPORT INFORMATION
  Report Type: 
  Country: None (occurrence: None)
  Receive Date: 20040329
  Receipt Date: 20031211
  Transmission Date: 20041129
  Serious: No
  Sender: FDA-Public Use
  Company Number: 03P-163-0244522-00

PATIENT
  Age: 81 Year
  Sex: Female

DRUGS (4)
  1. HUMIRA [Suspect]
     Indication: RHEUMATOID ARTHRITIS
     Dosage: 40 MG, 1 IN 2 WK, SUBCUTANEOUS
     Route: 058
     Dates: start: 20031024, end: 20031107
  2. ASPIRIN [Concomitant]
  3. ACETAMINOPHEN [Concomitant]
  4. LANSOPRAZOLE [Concomitant]

REACTIONS (7)
  - ASTHENIA [None]
  - HEADACHE [None]
  - JOINT SWELLING [None]
  - MUSCLE CRAMP [None]
  - PRURITUS [None]
  - SINUSITIS [None]
  - URTICARIA [None]
